FAERS Safety Report 23569809 (Version 2)
Quarter: 2024Q1

REPORT INFORMATION
  Report Type: Report from Study
  Country: US (occurrence: US)
  Receive Date: 20240227
  Receipt Date: 20240308
  Transmission Date: 20240410
  Serious: Yes (Death, Hospitalization, Other)
  Sender: FDA-Public Use
  Company Number: US-INSMED, INC.-2023-02859-US

PATIENT
  Sex: Male

DRUGS (3)
  1. ARIKAYCE [Suspect]
     Active Substance: AMIKACIN
     Indication: Mycobacterium avium complex infection
     Dosage: 590 MILLIGRAM, QD
     Route: 055
     Dates: start: 202307, end: 2023
  2. ARIKAYCE [Suspect]
     Active Substance: AMIKACIN
     Dosage: 590 MILLIGRAM, QD
     Route: 055
     Dates: start: 20231019
  3. ELIQUIS [Suspect]
     Active Substance: APIXABAN
     Indication: Thrombosis
     Dosage: UNK, UNK
     Route: 065
     Dates: start: 202309

REACTIONS (20)
  - Pulmonary embolism [Not Recovered/Not Resolved]
  - Death [Fatal]
  - Pneumonia [Not Recovered/Not Resolved]
  - Weight decreased [Unknown]
  - Condition aggravated [Unknown]
  - Dyschromatopsia [Not Recovered/Not Resolved]
  - Sputum discoloured [Not Recovered/Not Resolved]
  - Sputum increased [Not Recovered/Not Resolved]
  - Throat irritation [Not Recovered/Not Resolved]
  - Post-tussive vomiting [Not Recovered/Not Resolved]
  - Cough [Not Recovered/Not Resolved]
  - Dysphonia [Not Recovered/Not Resolved]
  - Diarrhoea [Recovered/Resolved]
  - Diarrhoea [Not Recovered/Not Resolved]
  - Nausea [Not Recovered/Not Resolved]
  - Dyspnoea [Not Recovered/Not Resolved]
  - Haemoptysis [Not Recovered/Not Resolved]
  - Product dose omission issue [Unknown]
  - Therapy interrupted [Unknown]
  - Drug ineffective [Unknown]

NARRATIVE: CASE EVENT DATE: 20230101
